FAERS Safety Report 20322821 (Version 1)
Quarter: 2022Q1

REPORT INFORMATION
  Report Type: Spontaneous
  Country: IR (occurrence: IR)
  Receive Date: 20220111
  Receipt Date: 20220111
  Transmission Date: 20220423
  Serious: Yes (Hospitalization, Other)
  Sender: FDA-Public Use
  Company Number: IR-CASPER PHARMA LLC-2021CAS000713

PATIENT
  Age: 33 Year
  Sex: Female

DRUGS (2)
  1. PENICILLIN G BENZATHINE [Suspect]
     Active Substance: PENICILLIN G BENZATHINE
     Indication: Pharyngitis
     Dosage: 6.3.3 UNITS/VIAL
     Route: 030
  2. BETAMETHASONE [Concomitant]
     Active Substance: BETAMETHASONE
     Indication: Pharyngitis
     Route: 030

REACTIONS (1)
  - Embolia cutis medicamentosa [Recovered/Resolved]
